FAERS Safety Report 21980713 (Version 1)
Quarter: 2023Q1

REPORT INFORMATION
  Report Type: Report from Study
  Country: GB (occurrence: GB)
  Receive Date: 20230211
  Receipt Date: 20230211
  Transmission Date: 20230418
  Serious: Yes (Congenital Anomaly, Other)
  Sender: FDA-Public Use
  Company Number: GB-GILEAD-2023-0613848

PATIENT
  Age: 6 Month
  Sex: Male

DRUGS (3)
  1. EMTRICITABINE\TENOFOVIR [Suspect]
     Active Substance: EMTRICITABINE\TENOFOVIR
     Indication: HIV infection
     Dosage: 1 DOSAGE FORM
     Route: 064
     Dates: start: 20191219
  2. REYATAZ [Suspect]
     Active Substance: ATAZANAVIR SULFATE
     Indication: HIV infection
     Dosage: 300 MG, QD
     Route: 064
     Dates: start: 20110819
  3. RITONAVIR [Suspect]
     Active Substance: RITONAVIR
     Indication: HIV infection
     Dosage: 100 MG, QD
     Route: 064
     Dates: start: 20110819

REACTIONS (8)
  - Cytogenetic abnormality [Unknown]
  - Intraventricular haemorrhage [Unknown]
  - Periventricular leukomalacia [Unknown]
  - Neonatal seizure [Unknown]
  - Neonatal respiratory distress syndrome [Unknown]
  - Pulmonary haemorrhage neonatal [Unknown]
  - Hyperbilirubinaemia [Unknown]
  - Foetal exposure during pregnancy [Recovered/Resolved]

NARRATIVE: CASE EVENT DATE: 20191219
